FAERS Safety Report 10909309 (Version 1)
Quarter: 2015Q1

REPORT INFORMATION
  Report Type: Spontaneous
  Country: US (occurrence: US)
  Receive Date: 20150312
  Receipt Date: 20150312
  Transmission Date: 20150721
  Serious: Yes (Other)
  Sender: FDA-Public Use
  Company Number: US-PERRIGO-15US002587

PATIENT
  Age: 13 Year
  Sex: Female
  Weight: 47.62 kg

DRUGS (3)
  1. NORTRIPTYLINE [Concomitant]
     Active Substance: NORTRIPTYLINE
     Indication: MENTAL DISORDER
     Dosage: UNK
     Route: 065
     Dates: start: 2014
  2. IBUPROFEN 200 MG BROWN 3C4 [Suspect]
     Active Substance: IBUPROFEN
     Indication: INTENTIONAL OVERDOSE
     Dosage: 20 G, SINGLE
     Route: 048
     Dates: start: 20150304, end: 20150304
  3. LAMICTAL [Concomitant]
     Active Substance: LAMOTRIGINE
     Indication: MENTAL DISORDER
     Dosage: UNK
     Route: 065
     Dates: start: 2015

REACTIONS (3)
  - Intentional overdose [Unknown]
  - Exposure via ingestion [None]
  - Abdominal pain upper [Not Recovered/Not Resolved]

NARRATIVE: CASE EVENT DATE: 20150304
